FAERS Safety Report 18221439 (Version 1)
Quarter: 2020Q3

REPORT INFORMATION
  Report Type: Spontaneous
  Country: US (occurrence: US)
  Receive Date: 20200901
  Receipt Date: 20200901
  Transmission Date: 20201103
  Serious: No
  Sender: FDA-Public Use
  Company Number: None

PATIENT
  Age: 77 Year
  Sex: Female
  Weight: 82.08 kg

DRUGS (11)
  1. LETROZOLE 2.5MG [Concomitant]
     Active Substance: LETROZOLE
  2. SYNTHROID [Concomitant]
     Active Substance: LEVOTHYROXINE SODIUM
  3. ELIQUIS [Concomitant]
     Active Substance: APIXABAN
  4. VERZENIO [Suspect]
     Active Substance: ABEMACICLIB
     Indication: BREAST CANCER METASTATIC
     Route: 048
     Dates: start: 20200702, end: 20200826
  5. ASPIRIN 81MG [Concomitant]
     Active Substance: ASPIRIN
  6. FULVESTRANT 500MG [Concomitant]
     Active Substance: FULVESTRANT
  7. GABAPENTIN 300MG [Concomitant]
     Active Substance: GABAPENTIN
  8. FUROSEMIDE 20MG [Concomitant]
     Active Substance: FUROSEMIDE
  9. POTASSIUM 10MG [Concomitant]
  10. PAROXETINE 20MG [Concomitant]
     Active Substance: PAROXETINE
  11. VITAMIN D3 2000 UNITS [Concomitant]

REACTIONS (1)
  - Breast cancer metastatic [None]

NARRATIVE: CASE EVENT DATE: 20200901
